FAERS Safety Report 8158609-8 (Version None)
Quarter: 2012Q1

REPORT INFORMATION
  Report Type: 
  Country: None (occurrence: None)
  Receive Date: 20120223
  Receipt Date: 20120214
  Transmission Date: 20120608
  Serious: Yes (Hospitalization)
  Sender: FDA-Public Use
  Company Number: US-BAYER-2011-046328

PATIENT
  Age: 21 Year
  Sex: Female
  Weight: 55.782 kg

DRUGS (5)
  1. YASMIN [Suspect]
     Dosage: UNK
     Dates: start: 20070425, end: 20070525
  2. AUGMENTIN '125' [Concomitant]
     Dosage: UNK
     Dates: start: 20070420
  3. YASMIN [Suspect]
     Indication: CONTRACEPTION
     Dosage: UNK
     Route: 048
     Dates: start: 20040509, end: 20050903
  4. ANTIBIOTICS [Concomitant]
     Dosage: UNK
     Dates: start: 20050420
  5. ADDERALL 5 [Concomitant]
     Indication: ATTENTION DEFICIT/HYPERACTIVITY DISORDER
     Dosage: UNK
     Dates: start: 20070101, end: 20080101

REACTIONS (8)
  - CONSTIPATION [None]
  - ERUCTATION [None]
  - CHOLECYSTITIS ACUTE [None]
  - ABDOMINAL DISTENSION [None]
  - EMOTIONAL DISTRESS [None]
  - DIARRHOEA [None]
  - PAIN [None]
  - ANHEDONIA [None]
